FAERS Safety Report 14424046 (Version 1)
Quarter: 2018Q1

REPORT INFORMATION
  Report Type: Spontaneous
  Country: GB (occurrence: GB)
  Receive Date: 20180123
  Receipt Date: 20180123
  Transmission Date: 20180509
  Serious: Yes (Other)
  Sender: FDA-Public Use
  Company Number: PHHY2018GB007131

PATIENT
  Age: 34 Year
  Sex: Female

DRUGS (3)
  1. LABETALOL HYDROCHLORIDE. [Suspect]
     Active Substance: LABETALOL HYDROCHLORIDE
     Indication: HYPERTENSION
     Dosage: 800 MG, QD
     Route: 048
     Dates: start: 201611
  2. NIFEDIPINE. [Concomitant]
     Active Substance: NIFEDIPINE
     Indication: PRODUCT USED FOR UNKNOWN INDICATION
     Dosage: GIVEN IN THE LAST 10 DAYS OF PREGNANCY
     Route: 065
  3. PARACETAMOL [Concomitant]
     Active Substance: ACETAMINOPHEN
     Indication: PRODUCT USED FOR UNKNOWN INDICATION
     Dosage: 1 DF, (USED THROUGHOUT PREGNANCY WHEN NEEDED)
     Route: 065

REACTIONS (5)
  - Raynaud^s phenomenon [Recovering/Resolving]
  - Breast discolouration [Recovering/Resolving]
  - Hypoaesthesia [Recovering/Resolving]
  - Feeling hot [Recovering/Resolving]
  - Breast pain [Recovering/Resolving]
